FAERS Safety Report 19591963 (Version 3)
Quarter: 2024Q3

REPORT INFORMATION
  Report Type: Report from Study
  Country: CA (occurrence: None)
  Receive Date: 20210722
  Receipt Date: 20240820
  Transmission Date: 20241016
  Serious: Yes (Hospitalization, Disabling, Other)
  Sender: ASTRAZENECA
  Company Number: 2021A615702

PATIENT
  Age: 26709 Day
  Sex: Male

DRUGS (7)
  1. FASENRA [Suspect]
     Active Substance: BENRALIZUMAB
     Indication: Asthma
     Dosage: 30.0MG UNKNOWN
     Route: 058
     Dates: start: 20190430
  2. ZENHALE [Concomitant]
     Active Substance: FORMOTEROL FUMARATE\MOMETASONE FUROATE
  3. NUCALA [Concomitant]
     Active Substance: MEPOLIZUMAB
  4. MONTELUKAST [Concomitant]
     Active Substance: MONTELUKAST SODIUM
  5. GLYCOPYRROLATE [Concomitant]
     Active Substance: GLYCOPYRROLATE
  6. BRICANYL [Concomitant]
     Active Substance: TERBUTALINE SULFATE
  7. LASIX [Concomitant]
     Active Substance: FUROSEMIDE

REACTIONS (9)
  - Vocal cord paralysis [Not Recovered/Not Resolved]
  - Cardiac valve disease [Unknown]
  - Post procedural haematoma [Recovered/Resolved]
  - Dysphonia [Not Recovered/Not Resolved]
  - Chronic obstructive pulmonary disease [Recovered/Resolved]
  - Dysphagia [Unknown]
  - Post procedural complication [Unknown]
  - Pneumonia [Recovered/Resolved]
  - Speech disorder [Unknown]

NARRATIVE: CASE EVENT DATE: 20210706
